FAERS Safety Report 8041427-9 (Version None)
Quarter: 2012Q1

REPORT INFORMATION
  Report Type: 
  Country: None (occurrence: None)
  Receive Date: 20120109
  Receipt Date: 20111226
  Transmission Date: 20120608
  Serious: Yes (Death, Life-Threatening, Hospitalization, Other)
  Sender: FDA-Public Use
  Company Number: 2011MA018073

PATIENT
  Age: 69 Year
  Sex: Male

DRUGS (28)
  1. COREG [Concomitant]
  2. ZOLOFT [Concomitant]
  3. CASODEX [Concomitant]
  4. POTASSIUM CHLORIDE [Concomitant]
  5. BENADRYL [Concomitant]
  6. EPINEPHRINE [Concomitant]
  7. QUINAPRIL [Concomitant]
  8. ISOSORBIDE DINITRATE [Concomitant]
  9. NEURONTIN [Concomitant]
  10. NITROSTAT [Concomitant]
  11. LASIX [Concomitant]
  12. ATROPINE [Concomitant]
  13. LEVAQUIN [Concomitant]
  14. PREVACID [Concomitant]
  15. ZOSYN [Concomitant]
  16. LOVENOX [Concomitant]
  17. DIGOXIN [Suspect]
     Indication: PRODUCT USED FOR UNKNOWN INDICATION
     Dosage: 0.25 MG;QD;PO
     Route: 048
     Dates: start: 20061101, end: 20080418
  18. TRICOR [Concomitant]
  19. REQUIP [Concomitant]
  20. IMDUR [Concomitant]
  21. LIDOCAINE [Concomitant]
  22. DARVOCET-N 100 [Concomitant]
  23. METFORMIN HCL [Concomitant]
  24. PREVACID [Concomitant]
  25. DETROL [Concomitant]
  26. LUPRON [Concomitant]
  27. M.V.I. [Concomitant]
  28. AMARYL [Concomitant]

REACTIONS (62)
  - DIZZINESS [None]
  - HEADACHE [None]
  - BUNDLE BRANCH BLOCK LEFT [None]
  - HYPERHIDROSIS [None]
  - NAUSEA [None]
  - URINARY INCONTINENCE [None]
  - CARDIAC FAILURE [None]
  - PAIN [None]
  - JOINT DISLOCATION [None]
  - ELECTROENCEPHALOGRAM [None]
  - RESPIRATORY DISTRESS [None]
  - DIARRHOEA [None]
  - HAEMATURIA [None]
  - ATRIAL FIBRILLATION [None]
  - CARDIO-RESPIRATORY ARREST [None]
  - ABDOMINAL DISTENSION [None]
  - TENDERNESS [None]
  - OEDEMA [None]
  - PULMONARY OEDEMA [None]
  - RESPIRATORY ARREST [None]
  - ASTHENIA [None]
  - NECK PAIN [None]
  - MECHANICAL VENTILATION [None]
  - CARDIOMEGALY [None]
  - CHRONIC OBSTRUCTIVE PULMONARY DISEASE [None]
  - CARDIAC ARREST [None]
  - PULMONARY HYPERTENSION [None]
  - RASH [None]
  - CHEST PAIN [None]
  - PRODUCTIVE COUGH [None]
  - DYSPNOEA [None]
  - CONFUSIONAL STATE [None]
  - DIABETES MELLITUS [None]
  - KNEE OPERATION [None]
  - SCAR [None]
  - HEART RATE IRREGULAR [None]
  - BLOOD POTASSIUM INCREASED [None]
  - PNEUMONIA [None]
  - ACUTE MYOCARDIAL INFARCTION [None]
  - CARDIAC FAILURE CONGESTIVE [None]
  - DEHYDRATION [None]
  - RESPIRATORY FAILURE [None]
  - BRADYCARDIA [None]
  - HAEMATOCRIT [None]
  - NUCLEAR MAGNETIC RESONANCE IMAGING [None]
  - VOMITING [None]
  - RENAL FAILURE ACUTE [None]
  - HYPERLIPIDAEMIA [None]
  - MUSCLE STRAIN [None]
  - PNEUMONIA ASPIRATION [None]
  - ISCHAEMIA [None]
  - CRYING [None]
  - TACHYARRHYTHMIA [None]
  - ATELECTASIS [None]
  - PLEURAL EFFUSION [None]
  - CARDIAC ENZYMES [None]
  - PRURITUS [None]
  - JOINT INJURY [None]
  - HYPOXIC-ISCHAEMIC ENCEPHALOPATHY [None]
  - RASH ERYTHEMATOUS [None]
  - TACHYCARDIA [None]
  - CREPITATIONS [None]
